FAERS Safety Report 20683154 (Version 1)
Quarter: 2022Q2

REPORT INFORMATION
  Report Type: Spontaneous
  Country: US (occurrence: US)
  Receive Date: 20220407
  Receipt Date: 20220407
  Transmission Date: 20220721
  Serious: Yes (Other)
  Sender: FDA-Public Use
  Company Number: US-HETERO-HET2022US00790

PATIENT
  Age: 66 Year
  Sex: Male

DRUGS (4)
  1. LINEZOLID [Suspect]
     Active Substance: LINEZOLID
     Indication: Nocardiosis
     Dosage: UNK
     Route: 065
  2. SULFAMETHOXAZOLE\TRIMETHOPRIM [Concomitant]
     Active Substance: SULFAMETHOXAZOLE\TRIMETHOPRIM
     Indication: Nocardiosis
     Dosage: UNK
     Route: 065
  3. TOBRAMYCIN [Concomitant]
     Active Substance: TOBRAMYCIN
     Indication: Nocardiosis
     Dosage: UNK
     Route: 065
  4. MOXIFLOXACIN [Concomitant]
     Active Substance: MOXIFLOXACIN
     Indication: Nocardiosis
     Dosage: UNK
     Route: 065

REACTIONS (2)
  - Cytopenia [Unknown]
  - Neuropathy peripheral [Unknown]
